FAERS Safety Report 23956648 (Version 1)
Quarter: 2024Q2

REPORT INFORMATION
  Report Type: Spontaneous
  Country: US (occurrence: US)
  Receive Date: 20240610
  Receipt Date: 20240610
  Transmission Date: 20240716
  Serious: Yes (Hospitalization, Other)
  Sender: FDA-Public Use
  Company Number: US-MLMSERVICE-20240521-PI069406-00152-5

PATIENT
  Age: 73 Year
  Sex: Female

DRUGS (2)
  1. FLUOROURACIL [Suspect]
     Active Substance: FLUOROURACIL
     Indication: Anal squamous cell carcinoma
     Dosage: 2000 MILLIGRAM/SQ. METER; 50% DOSE REDUCTION DUE TO DPD DEFICIENCY (2,000 MG/M2) OVER 96 HOURS
     Route: 065
  2. MITOMYCIN [Suspect]
     Active Substance: MITOMYCIN
     Indication: Anal squamous cell carcinoma
     Dosage: ON DAYS 1 AND 29 CONCURRENTLY WITH FU AND RADIOTHERAPY
     Route: 065

REACTIONS (4)
  - Dehydration [Unknown]
  - Nausea [Unknown]
  - Diarrhoea [Unknown]
  - Vomiting [Unknown]
